FAERS Safety Report 6401928-3 (Version None)
Quarter: 2009Q4

REPORT INFORMATION
  Report Type: 
  Country: None (occurrence: None)
  Receive Date: 20091015
  Receipt Date: 20091014
  Transmission Date: 20100525
  Serious: Yes (Hospitalization)
  Sender: FDA-Public Use
  Company Number: A0801362A

PATIENT
  Age: 59 Year
  Sex: Female

DRUGS (11)
  1. TYKERB [Suspect]
     Indication: BREAST CANCER
     Dosage: 4TAB PER DAY
     Route: 048
     Dates: start: 20090804
  2. SYNTHROID [Concomitant]
  3. ENALAPRIL MALEATE [Concomitant]
  4. COREG [Concomitant]
     Indication: CARDIAC FAILURE
  5. ESOMEPRAZOLE [Concomitant]
  6. MIACALCIN [Concomitant]
  7. LEVAQUIN [Concomitant]
  8. COUGH DROPS [Concomitant]
  9. ANTIBIOTICS [Concomitant]
     Indication: COUGH
     Route: 065
     Dates: end: 20090812
  10. ANAPRIL [Concomitant]
     Route: 065
  11. XELODA [Concomitant]
     Route: 048

REACTIONS (15)
  - ABDOMINAL PAIN UPPER [None]
  - AGEUSIA [None]
  - ASTHENIA [None]
  - BLISTER [None]
  - COUGH [None]
  - DEHYDRATION [None]
  - DIARRHOEA [None]
  - DRY MOUTH [None]
  - NAUSEA [None]
  - PARAESTHESIA [None]
  - PYREXIA [None]
  - SKIN CHAPPED [None]
  - SKIN EXFOLIATION [None]
  - STOMATITIS [None]
  - TONGUE DISCOLOURATION [None]
